FAERS Safety Report 8869129 (Version 1)
Quarter: 2012Q4

REPORT INFORMATION
  Report Type: 
  Country: ES (occurrence: None)
  Receive Date: 20121022
  Receipt Date: 20121022
  Transmission Date: 20130627
  Serious: No
  Sender: FDA-Public Use
  Company Number: METF20120008

PATIENT
  Age: 54 Year
  Sex: Male

DRUGS (1)
  1. METFORMIN HYDROCHLORIDE [Suspect]
     Indication: TYPE 1 DIABETES MELLITUS
     Dosage: 1700mg, 2 in 1 D, oral
     Route: 048

REACTIONS (9)
  - Lactic acidosis [None]
  - Blindness transient [None]
  - Renal failure acute [None]
  - Hypoglycaemia [None]
  - Diarrhoea [None]
  - Vomiting [None]
  - Diabetic neuropathy [None]
  - Vitreous haemorrhage [None]
  - Haemodialysis [None]
